FAERS Safety Report 10591644 (Version 1)
Quarter: 2014Q4

REPORT INFORMATION
  Report Type: Spontaneous
  Country: TW (occurrence: TW)
  Receive Date: 20141118
  Receipt Date: 20141118
  Transmission Date: 20150529
  Serious: Yes (Hospitalization)
  Sender: FDA-Public Use
  Company Number: TW-CUBIST PHARMACEUTICALS, INC.-2014CBST001538

PATIENT

DRUGS (18)
  1. CUBICIN [Suspect]
     Active Substance: DAPTOMYCIN
     Indication: OFF LABEL USE
  2. RIFAMPIN. [Concomitant]
     Active Substance: RIFAMPIN
     Indication: ESCHERICHIA INFECTION
  3. DORIPENEM [Concomitant]
     Active Substance: DORIPENEM
     Indication: STAPHYLOCOCCAL INFECTION
  4. CUBICIN [Suspect]
     Active Substance: DAPTOMYCIN
     Indication: URINARY TRACT INFECTION BACTERIAL
     Dosage: UNK UNK, UNK
     Route: 065
  5. RIFAMPIN. [Concomitant]
     Active Substance: RIFAMPIN
     Indication: MORGANELLA INFECTION
  6. RIFAMPIN. [Concomitant]
     Active Substance: RIFAMPIN
     Indication: STAPHYLOCOCCAL INFECTION
  7. LINEZOLID. [Concomitant]
     Active Substance: LINEZOLID
     Indication: MORGANELLA INFECTION
  8. DORIPENEM [Concomitant]
     Active Substance: DORIPENEM
     Indication: MORGANELLA INFECTION
  9. FLOMOXEF [Concomitant]
     Active Substance: FLOMOXEF
     Indication: URINARY TRACT INFECTION BACTERIAL
     Dosage: UNK UNK, UNK
     Route: 065
  10. DORIPENEM [Concomitant]
     Active Substance: DORIPENEM
     Indication: URINARY TRACT INFECTION BACTERIAL
     Dosage: UNK UNK, UNK
     Route: 065
  11. DORIPENEM [Concomitant]
     Active Substance: DORIPENEM
     Indication: ESCHERICHIA INFECTION
  12. LINEZOLID. [Concomitant]
     Active Substance: LINEZOLID
     Indication: URINARY TRACT INFECTION BACTERIAL
     Dosage: UNK UNK, UNK
     Route: 065
  13. LINEZOLID. [Concomitant]
     Active Substance: LINEZOLID
     Indication: ESCHERICHIA INFECTION
  14. LINEZOLID. [Concomitant]
     Active Substance: LINEZOLID
     Indication: STAPHYLOCOCCAL INFECTION
  15. RIFAMPIN. [Concomitant]
     Active Substance: RIFAMPIN
     Indication: CNS VENTRICULITIS
  16. RIFAMPIN. [Concomitant]
     Active Substance: RIFAMPIN
     Indication: URINARY TRACT INFECTION BACTERIAL
     Dosage: UNK UNK, UNK
     Route: 065
  17. LINEZOLID. [Concomitant]
     Active Substance: LINEZOLID
     Indication: CNS VENTRICULITIS
  18. ERTAPENEM [Concomitant]
     Active Substance: ERTAPENEM
     Indication: URINARY TRACT INFECTION BACTERIAL
     Dosage: UNK UNK, UNK
     Route: 065

REACTIONS (2)
  - Off label use [Unknown]
  - Status epilepticus [Recovered/Resolved]
